FAERS Safety Report 21362994 (Version 1)
Quarter: 2022Q3

REPORT INFORMATION
  Report Type: Spontaneous
  Country: US (occurrence: US)
  Receive Date: 20220922
  Receipt Date: 20220922
  Transmission Date: 20221027
  Serious: Yes (Hospitalization, Other)
  Sender: FDA-Public Use
  Company Number: US-SUN PHARMACEUTICAL INDUSTRIES LTD-2020R1-242919

PATIENT
  Age: 59 Year
  Sex: Male

DRUGS (3)
  1. VERAPAMIL [Interacting]
     Active Substance: VERAPAMIL HYDROCHLORIDE
     Indication: Hypertension
     Dosage: 180 MILLIGRAM, BID
     Route: 065
  2. CLONIDINE [Interacting]
     Active Substance: CLONIDINE
     Indication: Hypertension
     Dosage: 0.1 MILLIGRAM, TID
     Route: 065
  3. HYDRALAZINE [Concomitant]
     Active Substance: HYDRALAZINE HYDROCHLORIDE
     Indication: Hypertension
     Dosage: 100 MILLIGRAM, TID
     Route: 065

REACTIONS (3)
  - Sinus bradycardia [Recovered/Resolved]
  - Extrasystoles [Recovered/Resolved]
  - Drug interaction [Unknown]
